FAERS Safety Report 17394675 (Version 1)
Quarter: 2020Q1

REPORT INFORMATION
  Report Type: Spontaneous
  Country: FR (occurrence: FR)
  Receive Date: 20200210
  Receipt Date: 20200210
  Transmission Date: 20200409
  Serious: Yes (Hospitalization)
  Sender: FDA-Public Use
  Company Number: FR-SUN PHARMACEUTICAL INDUSTRIES LTD-2020RR-235921

PATIENT
  Age: 79 Year
  Sex: Female

DRUGS (4)
  1. ANAFRANIL [Suspect]
     Active Substance: CLOMIPRAMINE HYDROCHLORIDE
     Indication: DEPRESSION
     Dosage: 10 MILLIGRAM, DAILY
     Route: 048
     Dates: end: 20191225
  2. EUTHYRAL [Suspect]
     Active Substance: LEVOTHYROXINE SODIUM\LIOTHYRONINE SODIUM
     Indication: HYPOTHYROIDISM
     Dosage: NON PRECISEE ()
     Route: 048
     Dates: end: 20191225
  3. TERALITHE [Suspect]
     Active Substance: LITHIUM CARBONATE
     Indication: DEPRESSION
     Dosage: 400 MILLIGRAM, DAILY
     Route: 048
     Dates: end: 20191225
  4. TRAMADOL. [Suspect]
     Active Substance: TRAMADOL
     Indication: NECK PAIN
     Dosage: NON PRECISEE ()
     Route: 048
     Dates: start: 201912, end: 20191230

REACTIONS (3)
  - Speech disorder [Recovered/Resolved]
  - Psychomotor skills impaired [Recovered/Resolved]
  - Confusional state [Not Recovered/Not Resolved]

NARRATIVE: CASE EVENT DATE: 20191230
